FAERS Safety Report 5374497-7 (Version None)
Quarter: 2007Q2

REPORT INFORMATION
  Report Type: 
  Country: None (occurrence: None)
  Receive Date: 20070629
  Receipt Date: 20070320
  Transmission Date: 20071010
  Serious: No
  Sender: FDA-Public Use
  Company Number: A0643901A

PATIENT
  Sex: Female

DRUGS (3)
  1. ADVAIR DISKUS 100/50 [Suspect]
     Indication: DRUG USE FOR UNKNOWN INDICATION
     Dosage: 2PUFF TWICE PER DAY
     Route: 055
  2. QVAR 40 [Concomitant]
  3. HEART MEDICATION [Concomitant]

REACTIONS (1)
  - ACCIDENTAL OVERDOSE [None]
